FAERS Safety Report 14901201 (Version 3)
Quarter: 2019Q3

REPORT INFORMATION
  Report Type: Spontaneous
  Country: US (occurrence: US)
  Receive Date: 20180516
  Receipt Date: 20190910
  Transmission Date: 20191004
  Serious: Yes (Other)
  Sender: FDA-Public Use
  Company Number: US-PFIZER INC-2018195125

PATIENT
  Age: 35 Year
  Sex: Male
  Weight: 95.24 kg

DRUGS (2)
  1. SOMAVERT [Suspect]
     Active Substance: PEGVISOMANT
     Indication: ACROMEGALY
     Dosage: 15 MG, UNK
     Dates: start: 201201, end: 2013
  2. SOMAVERT [Suspect]
     Active Substance: PEGVISOMANT
     Indication: HEADACHE
     Dosage: UNK
     Dates: start: 2015

REACTIONS (7)
  - Hepatic enzyme increased [Recovered/Resolved]
  - Back disorder [Not Recovered/Not Resolved]
  - Back pain [Not Recovered/Not Resolved]
  - Memory impairment [Not Recovered/Not Resolved]
  - Addison^s disease [Not Recovered/Not Resolved]
  - Yellow skin [Recovered/Resolved]
  - Product dose omission [Unknown]

NARRATIVE: CASE EVENT DATE: 2014
